FAERS Safety Report 9868702 (Version 3)
Quarter: 2014Q2

REPORT INFORMATION
  Report Type: Report from Study
  Country: US (occurrence: US)
  Receive Date: 20140204
  Receipt Date: 20140402
  Transmission Date: 20141212
  Serious: Yes (Other)
  Sender: FDA-Public Use
  Company Number: US-ABBVIE-14P-163-1195189-00

PATIENT
  Age: 33 Year
  Sex: Female
  Weight: 74.46 kg

DRUGS (7)
  1. LUPRON DEPOT [Suspect]
     Indication: ENDOMETRIOSIS
     Route: 030
     Dates: start: 20140109
  2. CEPHALEXIN [Suspect]
     Indication: RASH
     Dates: start: 20140114
  3. GABAPENTIN [Concomitant]
     Indication: ENDOMETRIOSIS
  4. TRAMADOL [Concomitant]
     Indication: ENDOMETRIOSIS
  5. DICYCLOMINE [Concomitant]
     Indication: DYSPEPSIA
  6. HYOSCYAMINE [Concomitant]
     Indication: DYSPEPSIA
  7. LEXAPRO [Concomitant]
     Indication: ANXIETY

REACTIONS (23)
  - Throat irritation [Recovered/Resolved]
  - Ear pruritus [Recovered/Resolved]
  - Dyspnoea [Recovered/Resolved]
  - Pharyngeal oedema [Recovered/Resolved]
  - Dysphagia [Recovered/Resolved]
  - Hypoaesthesia [Recovered/Resolved]
  - Asthenia [Recovering/Resolving]
  - Nausea [Recovering/Resolving]
  - Diarrhoea [Recovered/Resolved]
  - Vomiting [Recovered/Resolved]
  - Discomfort [Recovered/Resolved]
  - Nervousness [Recovering/Resolving]
  - Hot flush [Recovered/Resolved]
  - Dizziness [Recovered/Resolved]
  - Middle ear effusion [Recovering/Resolving]
  - Asthenia [Recovering/Resolving]
  - Aphonia [Recovered/Resolved]
  - Panic attack [Recovering/Resolving]
  - Hypoaesthesia [Recovering/Resolving]
  - Hypoaesthesia [Recovering/Resolving]
  - Hypoaesthesia [Recovering/Resolving]
  - Rash papular [Recovering/Resolving]
  - Skin reaction [Recovered/Resolved]
